FAERS Safety Report 9407627 (Version 2)
Quarter: 2013Q3

REPORT INFORMATION
  Report Type: Not Available
  Country: JP (occurrence: JP)
  Receive Date: 20130718
  Receipt Date: 20130725
  Transmission Date: 20140515
  Serious: Yes (Hospitalization, Other)
  Sender: FDA-Public Use
  Company Number: JP-EISAI INC-E2020-12612-CLI-JP

PATIENT
  Age: 87 Year
  Sex: Male
  Weight: 50.2 kg

DRUGS (8)
  1. DONEPEZIL [Suspect]
     Indication: DEMENTIA ALZHEIMER^S TYPE
     Dosage: DOUBLE BLIND
     Dates: start: 20120919, end: 20130423
  2. DONEPEZIL [Suspect]
     Dosage: DOUBLE BLIND
     Dates: start: 20130424, end: 20130628
  3. DOMPERIDONE [Concomitant]
     Indication: PROPHYLAXIS
     Route: 048
     Dates: end: 20130628
  4. YOKUKANSANKACHIMPIHANGE [Concomitant]
     Indication: DEMENTIA ALZHEIMER^S TYPE
     Route: 048
     Dates: end: 20130628
  5. IRBETAN [Concomitant]
     Indication: HYPERTENSION
     Route: 048
     Dates: end: 20130628
  6. AMLODIPINE [Concomitant]
     Indication: HYPERTENSION
     Route: 048
     Dates: end: 20130628
  7. FAMOTIDINE [Concomitant]
     Indication: PROPHYLAXIS
     Route: 048
     Dates: start: 20130624, end: 20130628
  8. ASPARA POTASSIUM [Concomitant]
     Indication: PROPHYLAXIS
     Route: 048
     Dates: start: 20130624, end: 20130628

REACTIONS (2)
  - Enterocele [Not Recovered/Not Resolved]
  - Lung neoplasm malignant [Not Recovered/Not Resolved]
